FAERS Safety Report 8696897 (Version 2)
Quarter: 2015Q1

REPORT INFORMATION
  Report Type: Report from Study
  Country: FR (occurrence: FR)
  Receive Date: 20120801
  Receipt Date: 20150305
  Transmission Date: 20150721
  Serious: Yes (Hospitalization)
  Sender: FDA-Public Use
  Company Number: PHHO2012FR011084

PATIENT
  Age: 64 Year
  Sex: Female
  Weight: 82 kg

DRUGS (12)
  1. ATENOLOL. [Concomitant]
     Active Substance: ATENOLOL
  2. INSULIN DETEMIR [Concomitant]
     Active Substance: INSULIN DETEMIR
  3. ISRADIPINE. [Concomitant]
     Active Substance: ISRADIPINE
  4. HYDROCHLOROTHIAZIDE. [Concomitant]
     Active Substance: HYDROCHLOROTHIAZIDE
  5. EVEROLIMUS [Suspect]
     Active Substance: EVEROLIMUS
     Indication: HEART TRANSPLANT
     Dosage: 1.25 MG, BID
     Route: 048
     Dates: start: 20100317
  6. PREDNISOLONE. [Concomitant]
     Active Substance: PREDNISOLONE
  7. CEFIXIM//CEFIXIME [Concomitant]
  8. VALACICLOVIR [Concomitant]
     Active Substance: VALACYCLOVIR HYDROCHLORIDE
  9. REPAGLINIDE. [Concomitant]
     Active Substance: REPAGLINIDE
  10. RAMIPRIL. [Concomitant]
     Active Substance: RAMIPRIL
  11. ATORVASTATINA [Concomitant]
     Active Substance: ATORVASTATIN
  12. TACROLIMUS. [Suspect]
     Active Substance: TACROLIMUS
     Indication: HEART TRANSPLANT
     Dosage: 1 MG, QD
     Route: 048
     Dates: start: 20010613

REACTIONS (3)
  - Dyspnoea [Recovered/Resolved]
  - Oedema [Recovered/Resolved]
  - Orthopnoea [Recovered/Resolved]

NARRATIVE: CASE EVENT DATE: 20110309
